FAERS Safety Report 6159794-X (Version None)
Quarter: 2009Q2

REPORT INFORMATION
  Report Type: 
  Country: None (occurrence: None)
  Receive Date: 20090420
  Receipt Date: 20090409
  Transmission Date: 20091009
  Serious: Yes (Disabling)
  Sender: FDA-Public Use
  Company Number: US-ELI_LILLY_AND_COMPANY-US200904002353

PATIENT
  Age: 8 Year
  Sex: Male

DRUGS (3)
  1. STRATTERA [Suspect]
     Indication: ATTENTION DEFICIT/HYPERACTIVITY DISORDER
     Dosage: 18 MG, 2/D
     Route: 065
     Dates: start: 20080401
  2. ABILIFY [Concomitant]
     Dosage: UNK, EACH EVENING
     Route: 065
     Dates: start: 20090223, end: 20090101
  3. TENEX [Concomitant]
     Dosage: 5 MG, DAILY (1/D)
     Route: 065
     Dates: start: 20090210

REACTIONS (3)
  - EDUCATIONAL PROBLEM [None]
  - HEADACHE [None]
  - VISUAL IMPAIRMENT [None]
